FAERS Safety Report 4526424-X (Version None)
Quarter: 2004Q4

REPORT INFORMATION
  Report Type: 
  Country: None (occurrence: None)
  Receive Date: 20041214
  Receipt Date: 20041208
  Transmission Date: 20050328
  Serious: Yes (Hospitalization)
  Sender: FDA-Public Use
  Company Number: JP-ROCHE-388491

PATIENT
  Age: 72 Year
  Sex: Female

DRUGS (6)
  1. DENOSINE IV [Suspect]
     Indication: CYTOMEGALOVIRUS INFECTION
     Route: 041
     Dates: start: 20041119, end: 20041129
  2. BAKTAR [Suspect]
     Indication: DRUG USE FOR UNKNOWN INDICATION
     Route: 048
  3. MODACIN [Suspect]
     Indication: DRUG USE FOR UNKNOWN INDICATION
     Route: 051
  4. TOBRACIN [Suspect]
     Indication: DRUG USE FOR UNKNOWN INDICATION
     Route: 051
  5. STEROID NOS [Concomitant]
     Dates: start: 20041020
  6. IMMUNOSUPPRESSANT [Concomitant]
     Dates: start: 20041020, end: 20041023

REACTIONS (1)
  - COMA [None]
